FAERS Safety Report 6762315-1 (Version None)
Quarter: 2010Q2

REPORT INFORMATION
  Report Type: 
  Country: None (occurrence: None)
  Receive Date: 20100609
  Receipt Date: 20100526
  Transmission Date: 20101027
  Serious: Yes (Other)
  Sender: FDA-Public Use
  Company Number: PHHY2010AR34232

PATIENT
  Sex: Female

DRUGS (2)
  1. RASILEZ [Suspect]
     Indication: HYPERTENSION
     Dosage: 1 TABLET (300 MG), QOD
     Dates: start: 20100331
  2. RASILEZ D [Suspect]
     Indication: HYPERTENSION
     Dosage: 1 TABLET (150/12.5 MG), QOD
     Dates: start: 20100331

REACTIONS (2)
  - ARRHYTHMIA [None]
  - TACHYCARDIA [None]
